FAERS Safety Report 5985950-7 (Version None)
Quarter: 2008Q4

REPORT INFORMATION
  Report Type: 
  Country: None (occurrence: None)
  Receive Date: 20081205
  Receipt Date: 20081205
  Transmission Date: 20090506
  Serious: No
  Sender: FDA-Public Use
  Company Number: None

PATIENT
  Age: 25 Year
  Sex: Female
  Weight: 71.6683 kg

DRUGS (1)
  1. PROAIR HFA [Suspect]
     Indication: ASTHMA
     Dosage: 2 PUFFS AS NEEDED INHAL
     Route: 055
     Dates: start: 20080601, end: 20081201

REACTIONS (3)
  - DRUG EFFECT DECREASED [None]
  - MEDICAL DEVICE COMPLICATION [None]
  - PRODUCT QUALITY ISSUE [None]
